FAERS Safety Report 23548424 (Version 1)
Quarter: 2024Q1

REPORT INFORMATION
  Report Type: Spontaneous
  Country: US (occurrence: None)
  Receive Date: 20240219
  Receipt Date: 20240219
  Transmission Date: 20240410
  Serious: Yes (Other)
  Sender: FDA-Public Use
  Company Number: None

PATIENT
  Age: 62 Year
  Sex: Female
  Weight: 149.4 kg

DRUGS (1)
  1. HIZENTRA [Suspect]
     Active Substance: HUMAN IMMUNOGLOBULIN G
     Indication: Immunodeficiency common variable
     Dosage: FREQUENCY : WEEKLY;?
     Route: 058
     Dates: start: 20151012

REACTIONS (10)
  - Headache [None]
  - Hypoaesthesia [None]
  - Musculoskeletal stiffness [None]
  - Vision blurred [None]
  - Ocular discomfort [None]
  - Blood pressure increased [None]
  - Pain [None]
  - Hypoaesthesia [None]
  - Hypoaesthesia [None]
  - Product quality issue [None]

NARRATIVE: CASE EVENT DATE: 20240213
